FAERS Safety Report 4573018-6 (Version None)
Quarter: 2005Q1

REPORT INFORMATION
  Report Type: 
  Country: None (occurrence: None)
  Receive Date: 20050204
  Receipt Date: 20050128
  Transmission Date: 20050727
  Serious: Yes (Hospitalization)
  Sender: FDA-Public Use
  Company Number: GBWYE386701FEB05

PATIENT
  Age: 55 Year
  Sex: Female

DRUGS (10)
  1. EFFEXOR [Suspect]
     Indication: DEPRESSION
     Dosage: 225MG
     Route: 048
     Dates: start: 20041224, end: 20041230
  2. THIAMINE (THIAMINE) [Concomitant]
  3. BISOPROLOL FUMARATE [Concomitant]
  4. CO-CODAMOL (CODEINE PHOSPHATE/PARACETAMOL) [Concomitant]
  5. LANSOPRAZOLE [Concomitant]
  6. RABEPRAZOLE SODIUM [Concomitant]
  7. CHLORDIAZEPOXIDE [Concomitant]
  8. DISULFIRAM [Concomitant]
  9. VITAMIN B COMPLEX TAB [Concomitant]
  10. ASPIRIN [Concomitant]

REACTIONS (6)
  - ASTHENIA [None]
  - CONFUSIONAL STATE [None]
  - DISORIENTATION [None]
  - GRAND MAL CONVULSION [None]
  - HEMIPARESIS [None]
  - LACUNAR INFARCTION [None]
